FAERS Safety Report 8333319-2 (Version None)
Quarter: 2012Q1

REPORT INFORMATION
  Report Type: 
  Country: None (occurrence: None)
  Receive Date: 20120327
  Receipt Date: 20110328
  Transmission Date: 20120608
  Serious: Yes (Other)
  Sender: FDA-Public Use
  Company Number: PHHY2011US25656

PATIENT
  Sex: Female

DRUGS (4)
  1. ANTIBIOTICS (NO INGREDIENTS/SUBSTANCES) [Concomitant]
  2. GLEEVEC [Suspect]
     Indication: CHRONIC MYELOID LEUKAEMIA
     Dosage: 400 MG, DAILY, ORAL
     Route: 048
     Dates: start: 20110117
  3. PREDNISONE TAB [Concomitant]
  4. LOESTRIN 1.5/30 [Concomitant]

REACTIONS (4)
  - DYSPNOEA [None]
  - PNEUMONIA [None]
  - BRONCHITIS [None]
  - COUGH [None]
